FAERS Safety Report 22093111 (Version 2)
Quarter: 2023Q2

REPORT INFORMATION
  Report Type: Report from Study
  Country: US (occurrence: US)
  Receive Date: 20230314
  Receipt Date: 20230524
  Transmission Date: 20230721
  Serious: Yes (Hospitalization)
  Sender: FDA-Public Use
  Company Number: US-ABBVIE-4338957

PATIENT
  Sex: Female
  Weight: 77.11 kg

DRUGS (12)
  1. HUMIRA [Suspect]
     Active Substance: ADALIMUMAB
     Indication: Psoriasis
     Route: 058
     Dates: start: 20140828
  2. LUMIGAN [Suspect]
     Active Substance: BIMATOPROST
     Indication: Cataract
     Dosage: 0.1MG/ML EYE DROPS/ONE DROP
     Route: 061
     Dates: start: 2015
  3. Brimonidine Timolol [Concomitant]
     Indication: Cataract
  4. LISINOPRIL [Concomitant]
     Active Substance: LISINOPRIL
     Indication: Hypertension
  5. PROAIR HFA [Concomitant]
     Active Substance: ALBUTEROL SULFATE
     Indication: Cough
     Dosage: TIME INTERVAL: AS NECESSARY
  6. METOPROLOL TARTRATE [Concomitant]
     Active Substance: METOPROLOL TARTRATE
     Indication: Hypertension
  7. AVEENO [Concomitant]
     Active Substance: DIMETHICONE\HOMOSALATE\OCTINOXATE\OCTISALATE\TITANIUM DIOXIDE
     Indication: Dry skin
  8. FLUTICASONE PROPIONATE [Concomitant]
     Active Substance: FLUTICASONE PROPIONATE
     Indication: Hypersensitivity
     Dosage: TIME INTERVAL: AS NECESSARY
  9. MONTELUKAST SODIUM [Concomitant]
     Active Substance: MONTELUKAST SODIUM
     Indication: Upper-airway cough syndrome
  10. ECOTRIN [Concomitant]
     Active Substance: ASPIRIN
     Indication: Product used for unknown indication
  11. CLARITIN [Concomitant]
     Active Substance: LORATADINE
     Indication: Upper-airway cough syndrome
  12. TYLENOL [Concomitant]
     Active Substance: ACETAMINOPHEN
     Indication: Arthralgia

REACTIONS (11)
  - Foot fracture [Recovered/Resolved]
  - Asthenia [Unknown]
  - Animal scratch [Unknown]
  - Glucose tolerance impaired [Unknown]
  - Stress [Recovered/Resolved]
  - Psoriasis [Unknown]
  - Tooth extraction [Recovered/Resolved]
  - Weight decreased [Recovered/Resolved]
  - Hypertension [Unknown]
  - Fall [Unknown]
  - Wound abscess [Recovered/Resolved]

NARRATIVE: CASE EVENT DATE: 20220101
